FAERS Safety Report 9371172 (Version 2)
Quarter: 2013Q3

REPORT INFORMATION
  Report Type: Spontaneous
  Country: US (occurrence: US)
  Receive Date: 20130627
  Receipt Date: 20130909
  Transmission Date: 20140515
  Serious: Yes (Hospitalization)
  Sender: FDA-Public Use
  Company Number: US-BIOGENIDEC-2013BI055141

PATIENT
  Age: 49 Year
  Sex: Female

DRUGS (1)
  1. TYSABRI [Suspect]
     Indication: MULTIPLE SCLEROSIS
     Route: 042
     Dates: start: 20111103

REACTIONS (5)
  - Pulmonary oedema [Not Recovered/Not Resolved]
  - Hypotension [Recovered/Resolved]
  - Herpes zoster [Recovered/Resolved]
  - Skin discolouration [Recovered/Resolved]
  - Weight increased [Recovered/Resolved]
